FAERS Safety Report 16217025 (Version 2)
Quarter: 2019Q2

REPORT INFORMATION
  Report Type: Report from Study
  Country: BR (occurrence: BR)
  Receive Date: 20190419
  Receipt Date: 20190516
  Transmission Date: 20190711
  Serious: Yes (Other)
  Sender: FDA-Public Use
  Company Number: PHHY2019BR088488

PATIENT
  Sex: Male

DRUGS (2)
  1. FORASEQ [Suspect]
     Active Substance: BUDESONIDE\FORMOTEROL FUMARATE
     Indication: PRODUCT USED FOR UNKNOWN INDICATION
     Dosage: (FORMOTEROL FUMARATE 12, BUDESONIDE 400) (UNITS NOT REPORTED)
     Route: 055
  2. CARVEDILOL. [Concomitant]
     Active Substance: CARVEDILOL
     Indication: PRODUCT USED FOR UNKNOWN INDICATION
     Dosage: UNK
     Route: 065

REACTIONS (8)
  - Fatigue [Unknown]
  - Product availability issue [Unknown]
  - Drug dependence [Unknown]
  - Cardiac disorder [Unknown]
  - Chest pain [Unknown]
  - Cardiomegaly [Unknown]
  - Dyspnoea [Unknown]
  - Malaise [Unknown]
